FAERS Safety Report 13192719 (Version 14)
Quarter: 2018Q1

REPORT INFORMATION
  Report Type: Spontaneous
  Country: CA (occurrence: CA)
  Receive Date: 20170207
  Receipt Date: 20180214
  Transmission Date: 20180508
  Serious: Yes (Hospitalization, Other)
  Sender: FDA-Public Use
  Company Number: CA-CELLTRION INC.-2017CA001221

PATIENT

DRUGS (5)
  1. PREDNISONE                         /00044702/ [Concomitant]
     Active Substance: PREDNISONE
     Dosage: 20 MG, UNK
     Dates: start: 201612
  2. INFLECTRA [Suspect]
     Active Substance: INFLIXIMAB-DYYB
     Indication: COLITIS ULCERATIVE
     Dosage: 500 MG, EVERY 0, 2, 6 WEEKS, THEN EVERY 8 WEEKS FOR 6 MONTHS
     Route: 042
     Dates: start: 20170116
  3. INFLECTRA [Suspect]
     Active Substance: INFLIXIMAB-DYYB
     Dosage: 10 MG/KG, (900 MG TOTAL) EVERY 4 WEEKS
     Route: 042
  4. INFLECTRA [Suspect]
     Active Substance: INFLIXIMAB-DYYB
     Dosage: 10 MG/KG, (900 MG TOTAL) EVERY 4 WEEKS
     Route: 042
     Dates: start: 20180103
  5. SANDOZ RABEPRAZOLE [Concomitant]
     Dosage: 20 MG, BID
     Dates: start: 201611

REACTIONS (18)
  - Gastrointestinal haemorrhage [Not Recovered/Not Resolved]
  - Haemoglobin decreased [Not Recovered/Not Resolved]
  - Weight decreased [Unknown]
  - Chest pain [Unknown]
  - Heart rate increased [Recovered/Resolved]
  - Alopecia [Unknown]
  - Hypochromasia [Unknown]
  - Large intestinal stenosis [Unknown]
  - Gastritis erosive [Unknown]
  - Dyspnoea [Unknown]
  - Arthralgia [Unknown]
  - Product use issue [Unknown]
  - Pseudopolyposis [Recovering/Resolving]
  - Polychromasia [Unknown]
  - Gastric ulcer [Unknown]
  - Gastrooesophageal reflux disease [Not Recovered/Not Resolved]
  - Condition aggravated [Not Recovered/Not Resolved]
  - Abdominal pain [Unknown]

NARRATIVE: CASE EVENT DATE: 20170130
